FAERS Safety Report 24685381 (Version 1)
Quarter: 2024Q4

REPORT INFORMATION
  Report Type: Spontaneous
  Country: GB (occurrence: GB)
  Receive Date: 20241202
  Receipt Date: 20241202
  Transmission Date: 20250115
  Serious: Yes (Other)
  Sender: TEVA
  Company Number: GB-MHRA-TPP10282619C9944986YC1732276565605

PATIENT
  Age: 34 Year
  Sex: Female
  Weight: 81 kg

DRUGS (15)
  1. DOXYCYCLINE [Suspect]
     Active Substance: DOXYCYCLINE
     Indication: Ill-defined disorder
     Route: 065
     Dates: start: 20241122
  2. CODEINE PHOSPHATE [Concomitant]
     Active Substance: CODEINE PHOSPHATE
     Indication: Ill-defined disorder
     Dosage: TAKE 1 TABLET FOUR TIMES A DAY WHEN REQUIRED
     Route: 065
     Dates: start: 20230802
  3. DOXYCYCLINE [Concomitant]
     Active Substance: DOXYCYCLINE
     Indication: Ill-defined disorder
     Dosage: TWO NOW THEN ONE DAILY
     Route: 065
     Dates: start: 20241113, end: 20241120
  4. PROPRANOLOL [Concomitant]
     Active Substance: PROPRANOLOL HYDROCHLORIDE
     Indication: Ill-defined disorder
     Dosage: TAKE ONE DAILY
     Route: 065
     Dates: start: 20230802, end: 20241003
  5. MOMETASONE [Concomitant]
     Active Substance: MOMETASONE
     Indication: Ill-defined disorder
     Dosage: TWO SPRAYS INTO EACH NOSTRIL ONCE DAILY. ONCE S...
     Route: 065
     Dates: start: 20241113
  6. NITROFURANTOIN [Concomitant]
     Active Substance: NITROFURANTOIN
     Indication: Ill-defined disorder
     Dosage: ONE 4 TIMES A DAY. IF UNABLE TO SWALLOW CAPSULE...
     Route: 065
     Dates: start: 20240923, end: 20240926
  7. CO-DANTHRUSATE [Concomitant]
     Indication: Ill-defined disorder
     Dosage: 2X5ML SPOON AT NIGHT
     Route: 065
     Dates: start: 20240923, end: 20241013
  8. QUETIAPINE [Concomitant]
     Active Substance: QUETIAPINE
     Indication: Ill-defined disorder
     Dosage: TAKE ONE AT NIGHT
     Route: 065
     Dates: start: 20230802
  9. VORTIOXETINE [Concomitant]
     Active Substance: VORTIOXETINE
     Indication: Ill-defined disorder
     Dosage: TAKE THREE TABLETS DAILY
     Route: 065
     Dates: start: 20230802, end: 20241003
  10. LAMOTRIGINE [Concomitant]
     Active Substance: LAMOTRIGINE
     Indication: Ill-defined disorder
     Dosage: TIME INTERVAL: 0.33333333 DAYS: TAKE ONE TABLET THREE TIMES A DAY
     Route: 065
     Dates: start: 20230802
  11. GABAPENTIN [Concomitant]
     Active Substance: GABAPENTIN
     Indication: Ill-defined disorder
     Dosage: TIME INTERVAL: 0.33333333 DAYS: TAKE ONE THREE TIMES/DAY. TITRATE OVER THREE DA...
     Route: 065
     Dates: start: 20231212
  12. CLARITHROMYCIN [Concomitant]
     Active Substance: CLARITHROMYCIN
     Indication: Ill-defined disorder
     Dosage: ONE TWICE A DAY. PLEASE STOP QUETIAPINE WHILST ...
     Route: 065
     Dates: start: 20241114, end: 20241119
  13. DOCUSATE SODIUM [Concomitant]
     Active Substance: DOCUSATE SODIUM
     Indication: Ill-defined disorder
     Dosage: ONE UP TO FIVE TIMES A DAY FOR CONSTIPATION
     Route: 065
     Dates: start: 20240916, end: 20240928
  14. BISACODYL [Concomitant]
     Active Substance: BISACODYL
     Indication: Ill-defined disorder
     Dosage: ONE OR TWO A DAY
     Route: 065
     Dates: start: 20230802, end: 20241003
  15. ISPAGHULA EXTRACT\PSYLLIUM [Concomitant]
     Active Substance: HERBALS\PLANTAGO OVATA SEED\PLANTAGO SEED
     Indication: Ill-defined disorder
     Dosage: USE AS DIRECTED
     Route: 065
     Dates: start: 20240923, end: 20240924

REACTIONS (2)
  - Contusion [Recovered/Resolved]
  - Abdominal pain [Recovered/Resolved]

NARRATIVE: CASE EVENT DATE: 20241122
